FAERS Safety Report 12355287 (Version 7)
Quarter: 2016Q3

REPORT INFORMATION
  Report Type: Report from Study
  Country: US (occurrence: US)
  Receive Date: 20160511
  Receipt Date: 20160713
  Transmission Date: 20161109
  Serious: Yes (Hospitalization)
  Sender: FDA-Public Use
  Company Number: US-PFIZER INC-2016240973

PATIENT
  Age: 12 Year
  Sex: Male
  Weight: 50 kg

DRUGS (25)
  1. CYCLOPHOSPHAMIDE. [Suspect]
     Active Substance: CYCLOPHOSPHAMIDE
     Dosage: COURSE B: CYCLES 2, 4 AND 6 (CYCLE= 21 DAYS): 200 MG/M2, OVER 15-30 MINUTES ON DAYS 1-5
     Route: 042
     Dates: end: 20160406
  2. LEUCOVORIN /00566701/ [Concomitant]
     Active Substance: LEUCOVORIN
     Dosage: UNK, CYCLE 6
     Dates: start: 20160403, end: 20160409
  3. METHOTREXATE SODIUM. [Suspect]
     Active Substance: METHOTREXATE SODIUM
     Dosage: COURSE A: CYCLES 1, 3 AND 5 (CYCLE= 21 DAYS), 3000 MG/M2, OVER 3 HOURS ON DAY 1
     Route: 042
  4. METHOTREXATE SODIUM. [Suspect]
     Active Substance: METHOTREXATE SODIUM
     Dosage: COURSE B: CYCLES 2, 4 AND 6 (CYCLE= 21 DAYS): 3000 MG/M2, OVER 3 HOURS ON DAY 1
     Route: 042
     Dates: end: 20160402
  5. MESNA. [Concomitant]
     Active Substance: MESNA
     Dosage: UNK, CYCLE 3
     Dates: start: 20160122, end: 20160126
  6. LEUCOVORIN /00566701/ [Concomitant]
     Active Substance: LEUCOVORIN
     Dosage: UNK, CYCLE 1
     Dates: start: 20150209, end: 20150210
  7. LEUCOVORIN /00566701/ [Concomitant]
     Active Substance: LEUCOVORIN
     Dosage: UNK, CYCLE 5
     Dates: start: 20160313, end: 20160315
  8. DEXAMETHASONE. [Suspect]
     Active Substance: DEXAMETHASONE
     Dosage: COURSE A: CYCLES 1, 3 AND 5 (CYCLE= 21 DAYS): 5 MG/M2, BID ON DAYS 1-5
     Route: 048
  9. IFOSFAMIDE. [Concomitant]
     Active Substance: IFOSFAMIDE
     Indication: ANAPLASTIC LARGE CELL LYMPHOMA T- AND NULL-CELL TYPES
     Dosage: COURSE A: 800 MG/M2 OVER 60 MIN ON DAYS 1-5
     Route: 042
     Dates: end: 20160316
  10. MESNA. [Concomitant]
     Active Substance: MESNA
     Dosage: UNK, CYCLE 5
     Dates: start: 20160312, end: 20160316
  11. LEUCOVORIN /00566701/ [Concomitant]
     Active Substance: LEUCOVORIN
     Dosage: UNK, CYCLE 3
     Dates: start: 20160123, end: 20160124
  12. CRIZOTINIB [Suspect]
     Active Substance: CRIZOTINIB
     Dosage: COURSE B: CYCLES 2, 4 AND 6 (CYCLE= 21 DAYS), 165 MG/M2, BID ON DAYS 1-21
     Route: 048
     Dates: end: 20160411
  13. METHOTREXATE SODIUM. [Suspect]
     Active Substance: METHOTREXATE SODIUM
     Indication: ANAPLASTIC LARGE CELL LYMPHOMA T- AND NULL-CELL TYPES
     Dosage: PROPHASE (CYCLE = 5 DAYS): 7.5-12 MG IT ON DAY 1 (AGE BASED DOSING)
     Route: 037
  14. LEUCOVORIN /00566701/ [Concomitant]
     Active Substance: LEUCOVORIN
     Dosage: UNK, CYCLE 2
     Dates: start: 20151231, end: 20160301
  15. CRIZOTINIB [Suspect]
     Active Substance: CRIZOTINIB
     Indication: ANAPLASTIC LARGE CELL LYMPHOMA T- AND NULL-CELL TYPES
     Dosage: COURSE A:CYCLES 1, 3 AND 5 (CYCLE= 21 DAYS), 165 MG/M2, BID ON DAYS 1-21
     Route: 048
  16. CYCLOPHOSPHAMIDE. [Suspect]
     Active Substance: CYCLOPHOSPHAMIDE
     Indication: ANAPLASTIC LARGE CELL LYMPHOMA T- AND NULL-CELL TYPES
     Dosage: PROPHASE (CYCLE = 5 DAYS): 200 MG/M2, OVER 15-30 MINUTES ON DAYS 1 AND 2
     Route: 042
  17. CYTARABINE. [Concomitant]
     Active Substance: CYTARABINE
     Indication: ANAPLASTIC LARGE CELL LYMPHOMA T- AND NULL-CELL TYPES
     Dosage: PROPHASE (CYCLE = 5 DAYS), 15-24MG IT ON DAY 1 (AGE BASED DOSING)
     Route: 037
  18. CYTARABINE. [Concomitant]
     Active Substance: CYTARABINE
     Dosage: COURSE A: 150 MG/M2 OVER 1-30 MINUTES Q12 HOURS ON DAYS 4 AND 5 (TOTAL 4 DOSES)
     Route: 042
     Dates: end: 20160316
  19. ETOPOSIDE. [Concomitant]
     Active Substance: ETOPOSIDE
     Indication: ANAPLASTIC LARGE CELL LYMPHOMA T- AND NULL-CELL TYPES
     Dosage: COURSE A: 100 MG/M2 OVER 2 HOURS ON DAYS 4 AND 5
     Route: 042
     Dates: end: 20160316
  20. MESNA. [Concomitant]
     Active Substance: MESNA
     Dosage: UNK, CYCLE 1
     Dates: start: 20151207, end: 20151212
  21. DOXORUBICIN HCL [Suspect]
     Active Substance: DOXORUBICIN HYDROCHLORIDE
     Indication: ANAPLASTIC LARGE CELL LYMPHOMA T- AND NULL-CELL TYPES
     Dosage: COURSE B: 25 MG/M2 OVER 1-15 MIN ON DAYS 4 AND 5
     Route: 042
     Dates: end: 20160406
  22. DEXAMETHASONE. [Suspect]
     Active Substance: DEXAMETHASONE
     Indication: ANAPLASTIC LARGE CELL LYMPHOMA T- AND NULL-CELL TYPES
     Dosage: PROPHASE (CYCLE = 5 DAYS): 5 MG/M2, QD ON DAYS 1-2, BID ON DAYS 3-5
     Route: 048
  23. DEXAMETHASONE. [Suspect]
     Active Substance: DEXAMETHASONE
     Dosage: COURSE B: CYCLES 2, 4 AND 6 (CYCLE= 21 DAYS), 5 MG/M2 BID ON DAYS 1-5
     Route: 048
     Dates: end: 20160406
  24. LEUCOVORIN /00566701/ [Concomitant]
     Active Substance: LEUCOVORIN
     Dosage: UNK, CYCLE 4
     Dates: start: 20160221, end: 20160222
  25. HYDROCORTISONE. [Concomitant]
     Active Substance: HYDROCORTISONE
     Indication: ANAPLASTIC LARGE CELL LYMPHOMA T- AND NULL-CELL TYPES
     Dosage: PROPHASE (CYCLE = 5 DAYS): 7.5-12 MG IT ON DAY 1 (AGE BASE DOSING)
     Route: 037

REACTIONS (8)
  - Leptotrichia infection [Unknown]
  - Hypotension [Unknown]
  - Sepsis [Unknown]
  - Stomatitis [Unknown]
  - Febrile neutropenia [Unknown]
  - Pulmonary oedema [Unknown]
  - Sinus tachycardia [Unknown]
  - Respiratory failure [Unknown]

NARRATIVE: CASE EVENT DATE: 20160413
